FAERS Safety Report 7398961-4 (Version None)
Quarter: 2011Q1

REPORT INFORMATION
  Report Type: 
  Country: None (occurrence: None)
  Receive Date: 20110328
  Receipt Date: 20110311
  Transmission Date: 20110831
  Serious: Yes (Death, Life-Threatening, Hospitalization)
  Sender: FDA-Public Use
  Company Number: 201011046

PATIENT
  Age: 62 Year
  Sex: Female
  Weight: 81.6475 kg

DRUGS (1)
  1. XIAFLEX [Suspect]
     Indication: DUPUYTREN'S CONTRACTURE
     Dosage: 1 IN 1 D, INTRALESIONAL
     Route: 026
     Dates: start: 20101117, end: 20101117

REACTIONS (20)
  - AORTIC DISSECTION [None]
  - CHEST PAIN [None]
  - BLOOD POTASSIUM DECREASED [None]
  - CARBON DIOXIDE DECREASED [None]
  - BLOOD PRESSURE SYSTOLIC INCREASED [None]
  - DYSPNOEA [None]
  - DIZZINESS [None]
  - RESPIRATORY RATE INCREASED [None]
  - VOMITING [None]
  - HEART RATE INCREASED [None]
  - PAIN IN EXTREMITY [None]
  - BLOOD GLUCOSE INCREASED [None]
  - PLEURAL EFFUSION [None]
  - MEAN CELL HAEMOGLOBIN INCREASED [None]
  - MEAN CELL VOLUME INCREASED [None]
  - PLATELET COUNT DECREASED [None]
  - HYPERHIDROSIS [None]
  - ANION GAP INCREASED [None]
  - AORTIC CALCIFICATION [None]
  - CARDIAC ARREST [None]
